FAERS Safety Report 15997281 (Version 2)
Quarter: 2019Q2

REPORT INFORMATION
  Report Type: Report from Study
  Country: US (occurrence: US)
  Receive Date: 20190222
  Receipt Date: 20190610
  Transmission Date: 20190711
  Serious: Yes (Other)
  Sender: FDA-Public Use
  Company Number: US-VIFOR (INTERNATIONAL) INC.-VIT-2019-00209

PATIENT
  Age: 61 Year
  Sex: Male
  Weight: 78.09 kg

DRUGS (13)
  1. LETAIRIS [Concomitant]
     Active Substance: AMBRISENTAN
  2. ADCIRCA [Concomitant]
     Active Substance: TADALAFIL
  3. OMEPRAZOLE. [Concomitant]
     Active Substance: OMEPRAZOLE
  4. OMEGA 3 FISH OIL [Concomitant]
     Active Substance: FISH OIL\OMEGA-3 FATTY ACIDS
  5. ASPIRIN. [Concomitant]
     Active Substance: ASPIRIN
  6. LASIX [Concomitant]
     Active Substance: FUROSEMIDE
  7. ALLOPURINOL. [Concomitant]
     Active Substance: ALLOPURINOL
  8. MONTELUKAST SODIUM. [Concomitant]
     Active Substance: MONTELUKAST SODIUM
  9. MULTI VITAMIN [Concomitant]
     Active Substance: VITAMINS
  10. VELTASSA [Suspect]
     Active Substance: PATIROMER
  11. PRAVASTATIN. [Concomitant]
     Active Substance: PRAVASTATIN
  12. VELTASSA [Suspect]
     Active Substance: PATIROMER
     Indication: HYPERKALAEMIA
     Route: 048
     Dates: start: 20190110, end: 20190114
  13. METOPROLOL. [Concomitant]
     Active Substance: METOPROLOL

REACTIONS (5)
  - Heart rate increased [Unknown]
  - Angina pectoris [Recovered/Resolved]
  - Feeling abnormal [Unknown]
  - Abdominal discomfort [Unknown]
  - Constipation [Recovered/Resolved]

NARRATIVE: CASE EVENT DATE: 20190110
